FAERS Safety Report 23749977 (Version 1)
Quarter: 2024Q2

REPORT INFORMATION
  Report Type: Spontaneous
  Country: GB (occurrence: GB)
  Receive Date: 20240417
  Receipt Date: 20240417
  Transmission Date: 20240716
  Serious: Yes (Life-Threatening)
  Sender: FDA-Public Use
  Company Number: GB-STRIDES ARCOLAB LIMITED-2024SP004349

PATIENT
  Age: 4 Decade
  Sex: Male

DRUGS (9)
  1. PHENOBARBITAL [Suspect]
     Active Substance: PHENOBARBITAL
     Indication: Status epilepticus
     Dosage: UNK (LOADING)
  2. DIAZEPAM [Suspect]
     Active Substance: DIAZEPAM
     Indication: Status epilepticus
     Dosage: 40 MILLIGRAM
     Route: 042
  3. ATROPINE [Concomitant]
     Active Substance: ATROPINE\ATROPINE SULFATE
     Indication: Chemical poisoning
     Dosage: 70 MILLIGRAM (TOTAL MG OF ATROPINE)
     Route: 065
  4. EPINEPHRINE [Concomitant]
     Active Substance: EPINEPHRINE
     Indication: Chemical poisoning
     Dosage: UNK (EPINEPHRINE BOLUSES)
     Route: 065
  5. DEXTROSE [Concomitant]
     Active Substance: DEXTROSE\DEXTROSE MONOHYDRATE
     Indication: Product used for unknown indication
     Dosage: UNK
     Route: 065
  6. SUCCINYLCHOLINE [Concomitant]
     Active Substance: SUCCINYLCHOLINE
     Indication: Muscle relaxant therapy
     Dosage: 100 MILLIGRAM (1.5 MG/KG DOSE)
     Route: 065
  7. MAGNESIUM [Concomitant]
     Active Substance: MAGNESIUM
     Indication: Chemical poisoning
     Dosage: 20 MILLIMOLE (OVER 4HOURS WITHIN THE FIRST 24 HOURS)
     Route: 042
  8. METRONIDAZOLE [Concomitant]
     Active Substance: METRONIDAZOLE
     Indication: Aspiration
     Dosage: UNK
     Route: 065
  9. CEFTRIAXONE [Concomitant]
     Active Substance: CEFTRIAXONE\CEFTRIAXONE SODIUM
     Indication: Aspiration
     Dosage: UNK
     Route: 065

REACTIONS (1)
  - Drug ineffective [Unknown]
